FAERS Safety Report 5508323-X (Version None)
Quarter: 2007Q4

REPORT INFORMATION
  Report Type: 
  Country: None (occurrence: None)
  Receive Date: 20071106
  Receipt Date: 20071025
  Transmission Date: 20080405
  Serious: Yes (Other)
  Sender: FDA-Public Use
  Company Number: US-PFIZER INC-2007091637

PATIENT
  Sex: Female
  Weight: 104.54 kg

DRUGS (6)
  1. CHANTIX [Suspect]
     Indication: SMOKING CESSATION THERAPY
     Route: 048
     Dates: start: 20071023, end: 20071024
  2. ALTACE [Concomitant]
     Indication: HYPERTENSION
     Route: 048
  3. PROTONIX [Concomitant]
     Route: 048
  4. ZOLOFT [Concomitant]
     Indication: AFFECTIVE DISORDER
     Route: 048
  5. ALL OTHER THERAPEUTIC PRODUCTS [Concomitant]
  6. ANTIBIOTICS [Concomitant]
     Route: 048

REACTIONS (7)
  - ABASIA [None]
  - ASTHENIA [None]
  - EUPHORIC MOOD [None]
  - FEELING ABNORMAL [None]
  - FEELING JITTERY [None]
  - MUSCULAR WEAKNESS [None]
  - TACHYCARDIA [None]
